FAERS Safety Report 8522381-X (Version None)
Quarter: 2012Q3

REPORT INFORMATION
  Report Type: 
  Country: None (occurrence: None)
  Receive Date: 20120719
  Receipt Date: 20120712
  Transmission Date: 20120928
  Serious: Yes (Other)
  Sender: FDA-Public Use
  Company Number: US-PFIZER INC-2012169382

PATIENT
  Sex: Male
  Weight: 93.878 kg

DRUGS (3)
  1. LIPITOR [Concomitant]
     Indication: BLOOD CHOLESTEROL INCREASED
     Dosage: UNK, ONCE DAILY
     Route: 048
     Dates: start: 20000101
  2. VIAGRA [Suspect]
     Indication: ERECTILE DYSFUNCTION
     Dosage: UNK
     Route: 048
     Dates: start: 20100101, end: 20100101
  3. DYRENIUM [Concomitant]
     Indication: HYPERTENSION
     Dosage: UNK, ONCE DAILY
     Route: 048
     Dates: start: 20000101

REACTIONS (6)
  - ERYTHEMA [None]
  - ACTIVITIES OF DAILY LIVING IMPAIRED [None]
  - HEADACHE [None]
  - BLOOD PRESSURE INCREASED [None]
  - FLUSHING [None]
  - VISION BLURRED [None]
